FAERS Safety Report 6412651-3 (Version None)
Quarter: 2009Q4

REPORT INFORMATION
  Report Type: 
  Country: None (occurrence: None)
  Receive Date: 20091023
  Receipt Date: 20091016
  Transmission Date: 20100525
  Serious: Yes (Other)
  Sender: FDA-Public Use
  Company Number: PHHY2009GB29965

PATIENT
  Sex: Female

DRUGS (4)
  1. EXELON [Suspect]
     Indication: PARKINSON'S DISEASE
     Dosage: 4.6 MG, UNK
     Route: 062
     Dates: start: 20030101, end: 20090303
  2. EXELON [Suspect]
     Dosage: UNK
     Dates: start: 20090715, end: 20090717
  3. QUETIAPINE [Concomitant]
     Indication: HALLUCINATION, VISUAL
     Dosage: 50MG NOCTE
     Route: 048
  4. MADOPAR [Concomitant]
     Dosage: 25MG MANE

REACTIONS (4)
  - APPLICATION SITE ERYTHEMA [None]
  - APPLICATION SITE RASH [None]
  - APPLICATION SITE SWELLING [None]
  - PSYCHOTIC DISORDER [None]
